FAERS Safety Report 7448643-5 (Version None)
Quarter: 2011Q2

REPORT INFORMATION
  Report Type: 
  Country: None (occurrence: None)
  Receive Date: 20110429
  Receipt Date: 20100630
  Transmission Date: 20111010
  Serious: No
  Sender: FDA-Public Use
  Company Number: US-ASTRAZENECA-2010SE30636

PATIENT
  Sex: Female
  Weight: 65.8 kg

DRUGS (8)
  1. SYNTHROID [Concomitant]
  2. ALBUTEROL [Concomitant]
  3. MICARDIS [Concomitant]
  4. NEXIUM [Suspect]
     Route: 048
  5. ADVAIR DISKUS 100/50 [Concomitant]
  6. INSULIN [Concomitant]
  7. LASIX [Concomitant]
  8. NADOLOL [Concomitant]

REACTIONS (3)
  - GLOSSITIS [None]
  - SWOLLEN TONGUE [None]
  - LIP SWELLING [None]
